FAERS Safety Report 23694005 (Version 1)
Quarter: 2024Q2

REPORT INFORMATION
  Report Type: Other
  Country: IN (occurrence: IN)
  Receive Date: 20240401
  Receipt Date: 20240401
  Transmission Date: 20240716
  Serious: Yes (Life-Threatening)
  Sender: FDA-Public Use
  Company Number: IN-B.Braun Medical Inc.-2155093

PATIENT
  Age: 46 Year
  Sex: Female

DRUGS (7)
  1. EPINEPHRINE\LIDOCAINE HYDROCHLORIDE [Suspect]
     Active Substance: EPINEPHRINE\LIDOCAINE HYDROCHLORIDE
     Indication: Local anaesthesia
  2. DESFLURANE [Suspect]
     Active Substance: DESFLURANE
  3. NITROUS OXIDE [Concomitant]
     Active Substance: NITROUS OXIDE
  4. SODIUM CHLORIDE [Concomitant]
     Active Substance: SODIUM CHLORIDE
  5. VECURONIUM [Concomitant]
     Active Substance: VECURONIUM BROMIDE
  6. THIOPENTAL SODIUM [Concomitant]
     Active Substance: THIOPENTAL SODIUM
  7. FENTANYL [Concomitant]
     Active Substance: FENTANYL\FENTANYL CITRATE

REACTIONS (2)
  - Ventricular tachycardia [Recovered/Resolved with Sequelae]
  - Hypertension [Recovered/Resolved with Sequelae]
